FAERS Safety Report 8106506-6 (Version None)
Quarter: 2012Q1

REPORT INFORMATION
  Report Type: 
  Country: None (occurrence: None)
  Receive Date: 20120202
  Receipt Date: 20120123
  Transmission Date: 20120608
  Serious: Yes (Hospitalization, Other)
  Sender: FDA-Public Use
  Company Number: US-BAYER-2011-060298

PATIENT
  Age: 47 Year
  Sex: Female
  Weight: 63 kg

DRUGS (4)
  1. YAZ [Suspect]
     Indication: MENORRHAGIA
  2. KETOCONAZOLE [Concomitant]
  3. YAZ [Suspect]
     Indication: PREMENSTRUAL SYNDROME
     Dosage: UNK
     Dates: start: 20090101, end: 20090415
  4. IBUPROFEN [Concomitant]
     Dosage: UNK, PRN

REACTIONS (7)
  - PAIN [None]
  - PULMONARY INFARCTION [None]
  - PERICARDIAL EFFUSION [None]
  - EMOTIONAL DISTRESS [None]
  - MENTAL DISORDER [None]
  - PULMONARY EMBOLISM [None]
  - ANXIETY [None]
